FAERS Safety Report 9377044 (Version 1)
Quarter: 2013Q3

REPORT INFORMATION
  Report Type: Spontaneous
  Country: US (occurrence: US)
  Receive Date: 20130701
  Receipt Date: 20130701
  Transmission Date: 20140515
  Serious: Yes (Other)
  Sender: FDA-Public Use
  Company Number: US-PFIZER INC-2013191896

PATIENT
  Age: 52 Year
  Sex: Male
  Weight: 65.76 kg

DRUGS (1)
  1. VIAGRA [Suspect]
     Indication: ERECTILE DYSFUNCTION
     Dosage: 100 MG (BY TAKING TWO TABLETS OF 50MG), AS NEEDED
     Route: 048
     Dates: start: 2012

REACTIONS (1)
  - Tooth disorder [Unknown]
